FAERS Safety Report 21102091 (Version 1)
Quarter: 2022Q3

REPORT INFORMATION
  Report Type: Spontaneous
  Country: US (occurrence: US)
  Receive Date: 20220719
  Receipt Date: 20220719
  Transmission Date: 20221026
  Serious: No
  Sender: FDA-Public Use
  Company Number: US-JNJFOC-20220730084

PATIENT
  Age: 12 Year
  Sex: Male

DRUGS (2)
  1. RISPERDAL [Suspect]
     Active Substance: RISPERIDONE
     Indication: Attention deficit hyperactivity disorder
     Dosage: RISPERDAL 0.5 MG 1/2 TABLET DALLY FOR 3 DAYS, THEN 1 TABLET DAILY.
     Route: 048
     Dates: start: 20041216
  2. RISPERDAL [Suspect]
     Active Substance: RISPERIDONE
     Indication: Anger

REACTIONS (3)
  - Feeling abnormal [Unknown]
  - Incorrect dose administered [Unknown]
  - Off label use [Unknown]

NARRATIVE: CASE EVENT DATE: 20041216
